FAERS Safety Report 11501283 (Version 1)
Quarter: 2015Q3

REPORT INFORMATION
  Report Type: Spontaneous
  Country: US (occurrence: None)
  Receive Date: 20150911
  Receipt Date: 20150911
  Transmission Date: 20151125
  Serious: Yes (Hospitalization, Disabling)
  Sender: FDA-Public Use
  Company Number: None

PATIENT
  Age: 67 Year
  Sex: Female
  Weight: 65.77 kg

DRUGS (11)
  1. VITAMIN B6 [Concomitant]
     Active Substance: PYRIDOXINE HYDROCHLORIDE
  2. OXYCODONE [Concomitant]
     Active Substance: OXYCODONE
  3. PERJETTA [Concomitant]
  4. C [Concomitant]
  5. MELATONIN [Concomitant]
     Active Substance: MELATONIN
  6. XGEVA [Suspect]
     Active Substance: DENOSUMAB
     Dosage: FREQUENCY: EVERY 6 WEEKS?DURATION: 1-2 YEARS
  7. ASA [Concomitant]
     Active Substance: ASPIRIN
  8. HERCEPTIN [Concomitant]
     Active Substance: TRASTUZUMAB
  9. CALCIUM [Concomitant]
     Active Substance: CALCIUM
  10. RAMIPRIL. [Concomitant]
     Active Substance: RAMIPRIL
  11. MULTIVITE [Concomitant]
     Active Substance: VITAMINS

REACTIONS (1)
  - Atypical femur fracture [None]

NARRATIVE: CASE EVENT DATE: 20150902
